FAERS Safety Report 16421783 (Version 1)
Quarter: 2019Q2

REPORT INFORMATION
  Report Type: Spontaneous
  Country: CN (occurrence: CN)
  Receive Date: 20190612
  Receipt Date: 20190612
  Transmission Date: 20190711
  Serious: Yes (Other)
  Sender: FDA-Public Use
  Company Number: CN-B. BRAUN MEDICAL INC.-2068147

PATIENT
  Age: 33 Year
  Sex: Male
  Weight: 76 kg

DRUGS (2)
  1. NUTRILIPID I.V. FAT EMULSION [Suspect]
     Active Substance: SOYBEAN OIL
     Indication: NUTRITIONAL SUPPLEMENTATION
     Dates: start: 20190519, end: 20190522
  2. COMPOUND AMINO ACID INJECTION (18AA-V) [Concomitant]
     Active Substance: AMINO ACIDS

REACTIONS (1)
  - Transaminases increased [None]
